FAERS Safety Report 14765148 (Version 1)
Quarter: 2018Q2

REPORT INFORMATION
  Report Type: Spontaneous
  Country: ES (occurrence: ES)
  Receive Date: 20180416
  Receipt Date: 20180416
  Transmission Date: 20180711
  Serious: Yes (Other)
  Sender: FDA-Public Use
  Company Number: ES-TEVA-2018-ES-881754

PATIENT
  Age: 74 Year
  Weight: 164 kg

DRUGS (3)
  1. BEVACIZUMAB (2952A) [Suspect]
     Active Substance: BEVACIZUMAB
     Indication: COLON CANCER STAGE III
     Route: 042
     Dates: start: 20171011, end: 20171011
  2. CAPECITABINA [Suspect]
     Active Substance: CAPECITABINE
     Indication: COLON CANCER STAGE III
     Route: 042
     Dates: start: 20171018, end: 20171018
  3. OXALIPLATINO [Suspect]
     Active Substance: OXALIPLATIN
     Indication: COLON CANCER STAGE III
     Dosage: 1 DOSIS
     Route: 042
     Dates: start: 20171011, end: 20171011

REACTIONS (1)
  - Transient ischaemic attack [Recovered/Resolved]

NARRATIVE: CASE EVENT DATE: 20171018
